FAERS Safety Report 10510122 (Version 4)
Quarter: 2015Q1

REPORT INFORMATION
  Report Type: Report from Study
  Country: ZA (occurrence: ZA)
  Receive Date: 20141010
  Receipt Date: 20150211
  Transmission Date: 20150720
  Serious: Yes (Congenital Anomaly, Other)
  Sender: FDA-Public Use
  Company Number: ZA-AUROBINDO-AUR-APL-2014-08745

PATIENT
  Age: 0 Day
  Sex: Male
  Weight: 2.18 kg

DRUGS (13)
  1. TENOFOVIR DISOPROXIL FUMARATE 300MG [Suspect]
     Active Substance: TENOFOVIR DISOPROXIL FUMARATE
     Indication: HIV INFECTION
     Dosage: 300 MG, DAILY
     Route: 064
     Dates: start: 20140408
  2. ISONIAZID. [Concomitant]
     Active Substance: ISONIAZID
     Indication: PULMONARY TUBERCULOSIS
     Dosage: UNK
     Route: 064
     Dates: start: 20140416
  3. ETHAMBUTOL [Concomitant]
     Active Substance: ETHAMBUTOL HYDROCHLORIDE
     Indication: PULMONARY TUBERCULOSIS
     Dosage: UNK
     Route: 064
     Dates: start: 20140416
  4. RIFAMPIN. [Concomitant]
     Active Substance: RIFAMPIN
     Dosage: UNK
     Route: 064
     Dates: start: 20140616
  5. LAMIVUDINE. [Suspect]
     Active Substance: LAMIVUDINE
     Indication: HIV INFECTION
     Dosage: 300 MG, DAILY
     Route: 064
     Dates: start: 20050501
  6. FOLATE [Concomitant]
     Active Substance: FOLATE SODIUM
     Indication: VITAMIN SUPPLEMENTATION
     Route: 064
  7. PYRAZINAMIDE. [Concomitant]
     Active Substance: PYRAZINAMIDE
     Indication: PULMONARY TUBERCULOSIS
     Dosage: UNK
     Route: 064
     Dates: start: 20140416
  8. NEVIRAPINE. [Suspect]
     Active Substance: NEVIRAPINE
     Indication: HIV INFECTION
     Dosage: 400 MG, DAILY
     Route: 064
     Dates: start: 20050501, end: 20140408
  9. ISONIAZID. [Concomitant]
     Active Substance: ISONIAZID
     Dosage: UNK
     Route: 064
     Dates: start: 20140616
  10. STAVUDINE. [Suspect]
     Active Substance: STAVUDINE
     Indication: HIV INFECTION
     Dosage: 60 MG, DAILY
     Route: 064
     Dates: start: 20050501, end: 20140408
  11. KALETRA [Suspect]
     Active Substance: LOPINAVIR\RITONAVIR
     Indication: HIV INFECTION
     Dosage: 8 DF, UNK
     Route: 064
     Dates: start: 20140408
  12. ALUVIA [Suspect]
     Active Substance: LOPINAVIR\RITONAVIR
     Indication: HIV INFECTION
     Dosage: 8 DF, UNK
     Route: 064
     Dates: start: 20140408
  13. RIFAMPIN. [Concomitant]
     Active Substance: RIFAMPIN
     Indication: PULMONARY TUBERCULOSIS
     Dosage: UNK
     Route: 064
     Dates: start: 20140416

REACTIONS (11)
  - Pericardial effusion [Recovering/Resolving]
  - Nasal disorder [Recovering/Resolving]
  - Craniofacial deformity [Recovering/Resolving]
  - Foetal growth restriction [Recovering/Resolving]
  - Low set ears [Recovering/Resolving]
  - Limb malformation [Recovering/Resolving]
  - Dysmorphism [Recovering/Resolving]
  - Nose deformity [Recovering/Resolving]
  - Foetal exposure during pregnancy [Recovering/Resolving]
  - Trisomy 21 [Recovering/Resolving]
  - Protrusion tongue [Recovering/Resolving]

NARRATIVE: CASE EVENT DATE: 20140830
